FAERS Safety Report 8472473-9 (Version None)
Quarter: 2012Q2

REPORT INFORMATION
  Report Type: 
  Country: None (occurrence: None)
  Receive Date: 20120627
  Receipt Date: 20111014
  Transmission Date: 20120825
  Serious: No
  Sender: FDA-Public Use
  Company Number: US-AMGEN-USASP2011053504

PATIENT
  Age: 69 Year
  Sex: Female
  Weight: 104.31 kg

DRUGS (9)
  1. METOPROLOL TARTRATE [Concomitant]
     Indication: BLOOD PRESSURE
     Dosage: 100 MG, BID
     Route: 048
  2. AMBIEN [Concomitant]
     Indication: SLEEP DISORDER
     Dosage: 10 MG, QD
  3. NORTRIPTYLINE HYDROCHLORIDE [Concomitant]
     Indication: TEMPORAL ARTERITIS
     Dosage: 25 MG, QD
     Route: 048
  4. FUROSEMIDE [Concomitant]
     Dosage: 40 MG, PRN
     Route: 048
  5. WARFARIN SODIUM [Concomitant]
     Indication: BLOOD DISORDER
     Dosage: 5 MG, 2 TIMES/WK
  6. LANSOPRAZOLE [Concomitant]
     Indication: ABDOMINAL DISCOMFORT
     Dosage: 30 MG, QD
     Route: 048
  7. AMLODIPINE BESYLATE [Concomitant]
     Indication: HYPERTENSION
     Dosage: 5 MG, QD
     Route: 048
  8. PROCRIT [Suspect]
     Indication: ANAEMIA
     Dosage: 33000 IU, Q2WK
     Route: 058
     Dates: start: 20110501
  9. CLONIDINE [Concomitant]
     Indication: BLOOD PRESSURE
     Dosage: 2 MG, BID
     Route: 048

REACTIONS (1)
  - DRY MOUTH [None]
